FAERS Safety Report 5501829-9 (Version None)
Quarter: 2007Q4

REPORT INFORMATION
  Report Type: 
  Country: None (occurrence: None)
  Receive Date: 20071030
  Receipt Date: 20070102
  Transmission Date: 20080405
  Serious: No
  Sender: FDA-Public Use
  Company Number: A0624240A

PATIENT
  Age: 36 Year
  Sex: Female

DRUGS (4)
  1. SEREVENT [Suspect]
     Indication: ASTHMA
     Dosage: 1PUFF TWICE PER DAY
     Route: 055
     Dates: start: 19960101
  2. ASMACORT [Concomitant]
  3. ALBUTEROL [Concomitant]
  4. CLARITIN [Concomitant]

REACTIONS (4)
  - ACCIDENTAL OVERDOSE [None]
  - CHEST DISCOMFORT [None]
  - DRUG INEFFECTIVE [None]
  - PHARMACEUTICAL PRODUCT COMPLAINT [None]
